FAERS Safety Report 6743553-0 (Version None)
Quarter: 2010Q2

REPORT INFORMATION
  Report Type: 
  Country: None (occurrence: None)
  Receive Date: 20100527
  Receipt Date: 20100520
  Transmission Date: 20101027
  Serious: Yes (Hospitalization)
  Sender: FDA-Public Use
  Company Number: NL-MPIJNJ-2010-02113

PATIENT

DRUGS (4)
  1. VELCADE [Suspect]
     Indication: MULTIPLE MYELOMA
     Dosage: 2.4 MG, UNK
     Dates: start: 20090629
  2. CO-APROVEL [Concomitant]
     Route: 048
  3. NEXIAM                             /01479301/ [Concomitant]
     Dosage: 20 MG, UNK
     Route: 048
  4. TRAMADOL HCL [Concomitant]
     Dosage: 50 MG, UNK
     Route: 048

REACTIONS (5)
  - ASPARTATE AMINOTRANSFERASE INCREASED [None]
  - BLOOD CREATININE INCREASED [None]
  - BLOOD LACTATE DEHYDROGENASE INCREASED [None]
  - LEUKOPENIA [None]
  - THROMBOCYTOPENIA [None]
